FAERS Safety Report 10068487 (Version 1)
Quarter: 2014Q2

REPORT INFORMATION
  Report Type: Spontaneous
  Country: FR (occurrence: FR)
  Receive Date: 20140409
  Receipt Date: 20140409
  Transmission Date: 20141212
  Serious: Yes (Hospitalization)
  Sender: FDA-Public Use
  Company Number: FR-JNJFOC-20140319027

PATIENT
  Age: 79 Year
  Sex: Male

DRUGS (9)
  1. ZYTIGA [Suspect]
     Indication: PROSTATE CANCER
     Route: 048
     Dates: start: 20131015, end: 20140122
  2. CORTANCYL [Suspect]
     Indication: PRODUCT USED FOR UNKNOWN INDICATION
     Route: 065
     Dates: start: 201310
  3. DUROGESIC [Concomitant]
     Route: 065
  4. BISOPROLOL [Concomitant]
     Route: 065
  5. MOPRAL [Concomitant]
     Route: 065
  6. IKOREL [Concomitant]
     Route: 065
  7. CASODEX [Concomitant]
     Route: 065
  8. KARDEGIC [Concomitant]
     Route: 065
  9. PRAVASTATIN [Concomitant]
     Route: 065

REACTIONS (9)
  - Liver injury [Unknown]
  - Metastases to spine [Unknown]
  - Type 2 diabetes mellitus [Unknown]
  - Renal failure [Recovered/Resolved]
  - Plasma cell myeloma [Unknown]
  - Thrombocytopenia [Recovering/Resolving]
  - Anaemia [Recovering/Resolving]
  - Lymphopenia [Recovering/Resolving]
  - Treatment failure [Unknown]
